FAERS Safety Report 4981986-3 (Version None)
Quarter: 2006Q2

REPORT INFORMATION
  Report Type: 
  Country: None (occurrence: None)
  Receive Date: 20060425
  Receipt Date: 20050414
  Transmission Date: 20061013
  Serious: Yes (Death, Hospitalization)
  Sender: FDA-Public Use
  Company Number: US-MERCK-0504USA02998

PATIENT
  Age: 42 Year
  Sex: Male
  Weight: 136 kg

DRUGS (5)
  1. VIOXX [Suspect]
     Indication: MONARTHRITIS
     Route: 048
     Dates: start: 20010101, end: 20020702
  2. VASOTEC [Concomitant]
     Indication: CARDIOMEGALY
     Route: 048
     Dates: start: 20000101, end: 20020702
  3. COUMADIN [Concomitant]
     Route: 065
     Dates: start: 20000101, end: 20020702
  4. COREG [Concomitant]
     Route: 065
     Dates: start: 20000101, end: 20020702
  5. LANOXIN [Concomitant]
     Route: 065
     Dates: start: 20000101, end: 20020702

REACTIONS (2)
  - CARDIAC ARREST [None]
  - CONGESTIVE CARDIOMYOPATHY [None]
